FAERS Safety Report 4746087-8 (Version None)
Quarter: 2005Q3

REPORT INFORMATION
  Report Type: 
  Country: None (occurrence: None)
  Receive Date: 20050816
  Receipt Date: 20050809
  Transmission Date: 20060218
  Serious: Yes (Other)
  Sender: FDA-Public Use
  Company Number: PHBS2005NL11492

PATIENT
  Age: 50 Year
  Sex: Male

DRUGS (3)
  1. AMITRIPTYLINE [Concomitant]
     Dosage: 50 MG, QID
  2. BIPERIDEN HYDROCHLORIDE TAB [Concomitant]
     Dosage: 2 MG, TID
     Dates: start: 20050701
  3. CLOZAPINE [Suspect]
     Indication: SCHIZOPHRENIA
     Dosage: 100-700 MG/DAY

REACTIONS (6)
  - DISTURBANCE IN ATTENTION [None]
  - DROP ATTACKS [None]
  - DYSKINESIA [None]
  - HYPERHIDROSIS [None]
  - MYOCLONUS [None]
  - TREMOR [None]
